FAERS Safety Report 5533090-3 (Version None)
Quarter: 2007Q4

REPORT INFORMATION
  Report Type: 
  Country: None (occurrence: None)
  Receive Date: 20071120
  Receipt Date: 20071008
  Transmission Date: 20080405
  Serious: No
  Sender: FDA-Public Use
  Company Number: WAES 0710USA01997

PATIENT
  Age: 41 Year
  Sex: Female

DRUGS (4)
  1. JANUVIA [Suspect]
     Indication: DIABETES MELLITUS
     Dosage: 100 MG/DAILY/PO
     Route: 048
     Dates: start: 20071004
  2. PREVACID [Concomitant]
  3. TRICOR [Concomitant]
  4. METOPROLOL [Concomitant]

REACTIONS (1)
  - DRUG INEFFECTIVE [None]
